FAERS Safety Report 7126519-0 (Version None)
Quarter: 2010Q4

REPORT INFORMATION
  Report Type: 
  Country: None (occurrence: None)
  Receive Date: 20101129
  Receipt Date: 20100928
  Transmission Date: 20110411
  Serious: No
  Sender: FDA-Public Use
  Company Number: US-MYLANLABS-2010S1017851

PATIENT
  Age: 77 Year
  Sex: Male

DRUGS (1)
  1. LANSOPRAZOLE [Suspect]
     Route: 048

REACTIONS (1)
  - SOMNOLENCE [None]
